FAERS Safety Report 18442293 (Version 1)
Quarter: 2020Q4

REPORT INFORMATION
  Report Type: Spontaneous
  Country: CN (occurrence: CN)
  Receive Date: 20201029
  Receipt Date: 20201029
  Transmission Date: 20210114
  Serious: Yes (Death)
  Sender: FDA-Public Use
  Company Number: CN-ALLERGAN-2041205US

PATIENT
  Sex: Male

DRUGS (2)
  1. CEFTAZIDIME;AVIBACTAM - BP [Suspect]
     Active Substance: AVIBACTAM SODIUM\CEFTAZIDIME
     Indication: ABDOMINAL INFECTION
     Dosage: UNK
  2. POLYMYXIN B. [Concomitant]
     Active Substance: POLYMYXIN B
     Dosage: UNK

REACTIONS (4)
  - Myelosuppression [Fatal]
  - Platelet count decreased [Fatal]
  - White blood cell count decreased [Fatal]
  - Haemorrhage [Fatal]
